FAERS Safety Report 24547795 (Version 1)
Quarter: 2024Q4

REPORT INFORMATION
  Report Type: Spontaneous
  Country: ES (occurrence: ES)
  Receive Date: 20241025
  Receipt Date: 20241025
  Transmission Date: 20250114
  Serious: Yes (Other)
  Sender: AMGEN
  Company Number: None

PATIENT
  Age: 63 Year
  Sex: Male

DRUGS (1)
  1. ADALIMUMAB [Suspect]
     Active Substance: ADALIMUMAB
     Indication: Crohn^s disease
     Dosage: UNK
     Route: 065
     Dates: start: 20221222, end: 20230901

REACTIONS (1)
  - Skin squamous cell carcinoma recurrent [Unknown]

NARRATIVE: CASE EVENT DATE: 20230601
